FAERS Safety Report 12764124 (Version 2)
Quarter: 2016Q4

REPORT INFORMATION
  Report Type: Spontaneous
  Country: US (occurrence: US)
  Receive Date: 20160920
  Receipt Date: 20161020
  Transmission Date: 20170207
  Serious: Yes (Hospitalization, Other)
  Sender: FDA-Public Use
  Company Number: US-BAUSCH-BL-2016-022846

PATIENT
  Age: 81 Year
  Sex: Female

DRUGS (1)
  1. XIFAXAN [Suspect]
     Active Substance: RIFAXIMIN
     Indication: END STAGE RENAL DISEASE
     Route: 065
     Dates: start: 201603, end: 20160914

REACTIONS (5)
  - End stage renal disease [Recovering/Resolving]
  - Off label use [Recovered/Resolved]
  - Blood pressure decreased [Recovering/Resolving]
  - Liver disorder [Recovering/Resolving]
  - Asthenia [Recovering/Resolving]

NARRATIVE: CASE EVENT DATE: 20160914
